FAERS Safety Report 17450928 (Version 1)
Quarter: 2020Q1

REPORT INFORMATION
  Report Type: Spontaneous
  Country: US (occurrence: US)
  Receive Date: 20200210
  Receipt Date: 20200210
  Transmission Date: 20200409
  Serious: No
  Sender: FDA-Public Use
  Company Number: None

PATIENT
  Age: 69 Year
  Sex: Male

DRUGS (1)
  1. GLATIRAMER 40MG PFS INJ (12/BOX) [Suspect]
     Active Substance: GLATIRAMER
     Dosage: ?          OTHER DOSE:1 SYRINGE;OTHER FREQUENCY:OTHER;?
     Route: 058
     Dates: start: 2019

REACTIONS (4)
  - Asthenia [None]
  - Urinary tract infection [None]
  - Muscular weakness [None]
  - Influenza [None]

NARRATIVE: CASE EVENT DATE: 20200210
